FAERS Safety Report 7334138-6 (Version None)
Quarter: 2011Q1

REPORT INFORMATION
  Report Type: 
  Country: None (occurrence: None)
  Receive Date: 20110302
  Receipt Date: 20110302
  Transmission Date: 20110831
  Serious: No
  Sender: FDA-Public Use
  Company Number: None

PATIENT
  Age: 42 Year
  Sex: Female
  Weight: 102.5129 kg

DRUGS (2)
  1. OLANZAPINE [Suspect]
     Indication: PSYCHOTIC DISORDER
     Dosage: 10MG ONCE IM
     Route: 030
     Dates: start: 20101213, end: 20101214
  2. OLANZAPINE [Suspect]
     Indication: AGITATION
     Dosage: 10MG ONCE IM
     Route: 030
     Dates: start: 20101213, end: 20101214

REACTIONS (1)
  - TINNITUS [None]
